FAERS Safety Report 5421408-1 (Version None)
Quarter: 2007Q3

REPORT INFORMATION
  Report Type: 
  Country: None (occurrence: None)
  Receive Date: 20070821
  Receipt Date: 20070808
  Transmission Date: 20080115
  Serious: Yes (Other)
  Sender: FDA-Public Use
  Company Number: US-ELI_LILLY_AND_COMPANY-US200706005479

PATIENT
  Age: 34 Year
  Sex: Female

DRUGS (4)
  1. CYMBALTA [Suspect]
     Indication: VULVOVAGINAL DISCOMFORT
     Dosage: 30 MG, DAILY (1/D)
     Route: 048
     Dates: start: 20061201
  2. CYMBALTA [Suspect]
     Dosage: 60 MG, DAILY (1/D)
     Route: 048
     Dates: start: 20070101
  3. AVONEX [Concomitant]
  4. TRAZODONE HCL [Concomitant]

REACTIONS (9)
  - BILIRUBIN URINE [None]
  - BLOOD URINE PRESENT [None]
  - CONSTIPATION [None]
  - DEHYDRATION [None]
  - DRY MOUTH [None]
  - FATIGUE [None]
  - HAEMOGLOBIN DECREASED [None]
  - PALPITATIONS [None]
  - SYNCOPE [None]
